FAERS Safety Report 7029830-7 (Version None)
Quarter: 2010Q4

REPORT INFORMATION
  Report Type: 
  Country: None (occurrence: None)
  Receive Date: 20101006
  Receipt Date: 20100928
  Transmission Date: 20110411
  Serious: Yes (Other)
  Sender: FDA-Public Use
  Company Number: US-BIOGENIDEC-2010BI026176

PATIENT
  Age: 60 Year
  Sex: Female

DRUGS (2)
  1. AVONEX [Suspect]
     Indication: MULTIPLE SCLEROSIS
     Route: 030
     Dates: start: 20030902, end: 20060614
  2. AVONEX [Suspect]
     Route: 030
     Dates: start: 20071205

REACTIONS (4)
  - GLAUCOMA [None]
  - MUSCULAR WEAKNESS [None]
  - PUPILLARY DISORDER [None]
  - SKIN ULCER [None]
